FAERS Safety Report 24591055 (Version 2)
Quarter: 2024Q4

REPORT INFORMATION
  Report Type: Spontaneous
  Country: TW (occurrence: TW)
  Receive Date: 20241107
  Receipt Date: 20241204
  Transmission Date: 20250114
  Serious: Yes (Other)
  Sender: TAKEDA
  Company Number: TW-OTSUKA-2024_025323

PATIENT
  Age: 44 Year
  Sex: Male

DRUGS (1)
  1. ICLUSIG [Suspect]
     Active Substance: PONATINIB HYDROCHLORIDE
     Indication: Chronic myeloid leukaemia
     Dosage: 45 MILLIGRAM, QD
     Dates: start: 20240712, end: 20240812

REACTIONS (7)
  - Respiratory failure [Recovered/Resolved]
  - Arrhythmia [Recovered/Resolved]
  - Acid base balance abnormal [Not Recovered/Not Resolved]
  - Jaundice [Unknown]
  - Neutrophil count decreased [Recovered/Resolved]
  - Aspartate aminotransferase increased [Unknown]
  - Alanine aminotransferase increased [Unknown]

NARRATIVE: CASE EVENT DATE: 20240812
